FAERS Safety Report 8258867-5 (Version None)
Quarter: 2012Q1

REPORT INFORMATION
  Report Type: 
  Country: None (occurrence: None)
  Receive Date: 20120322
  Receipt Date: 20120209
  Transmission Date: 20120608
  Serious: Yes (Hospitalization)
  Sender: FDA-Public Use
  Company Number: UTC-014590

PATIENT
  Age: 75 Year
  Sex: Female
  Weight: 70.45 kg

DRUGS (6)
  1. TRADJENTA [Concomitant]
  2. REVATIO [Concomitant]
  3. AMIODARONE HCL [Concomitant]
  4. DIURETICS (DIURETICS) [Concomitant]
  5. TYVASO [Suspect]
     Indication: ESSENTIAL HYPERTENSION
     Dosage: 216 MCG (54 MCG,4 IN 1 D),INHALATION)
     Route: 055
     Dates: start: 20110816
  6. ASPIRIN [Concomitant]

REACTIONS (3)
  - PULMONARY ARTERIAL HYPERTENSION [None]
  - RENAL FAILURE [None]
  - RESPIRATORY FAILURE [None]
